FAERS Safety Report 19244470 (Version 2)
Quarter: 2021Q2

REPORT INFORMATION
  Report Type: Report from Study
  Country: US (occurrence: US)
  Receive Date: 20210512
  Receipt Date: 20210610
  Transmission Date: 20210717
  Serious: Yes (Other)
  Sender: FDA-Public Use
  Company Number: US-UCBSA-2021016968

PATIENT
  Sex: Female

DRUGS (3)
  1. CERTOLIZUMAB PEGOL [Suspect]
     Active Substance: CERTOLIZUMAB PEGOL
     Dosage: 400 MILLIGRAM, MONTHLY (QM)
     Dates: end: 2021
  2. PENICILLINE [BENZYLPENICILLIN] [Concomitant]
     Active Substance: PENICILLIN G
     Indication: TOOTH INFECTION
     Dosage: UNK
     Dates: start: 2021, end: 20210426
  3. CERTOLIZUMAB PEGOL [Suspect]
     Active Substance: CERTOLIZUMAB PEGOL
     Indication: RHEUMATOID ARTHRITIS
     Dosage: 400 MILLIGRAM, EV 2 WEEKS(QOW)
     Dates: start: 20210322, end: 2021

REACTIONS (7)
  - Tooth fracture [Recovered/Resolved]
  - Tooth infection [Not Recovered/Not Resolved]
  - Dental alveolar anomaly [Not Recovered/Not Resolved]
  - Psoriasis [Not Recovered/Not Resolved]
  - Swelling [Recovered/Resolved]
  - Rash [Not Recovered/Not Resolved]
  - Bone fragmentation [Recovered/Resolved]

NARRATIVE: CASE EVENT DATE: 2021
